FAERS Safety Report 16629247 (Version 5)
Quarter: 2019Q4

REPORT INFORMATION
  Report Type: Spontaneous
  Country: BR (occurrence: BR)
  Receive Date: 20190725
  Receipt Date: 20191119
  Transmission Date: 20200122
  Serious: Yes (Other)
  Sender: FDA-Public Use
  Company Number: PHHY2019BR171702

PATIENT
  Sex: Female

DRUGS (1)
  1. ESTALIS [Suspect]
     Active Substance: ESTRADIOL\NORETHINDRONE ACETATE
     Indication: HOT FLUSH
     Dosage: UNK
     Route: 062
     Dates: start: 201810

REACTIONS (6)
  - Drug ineffective [Unknown]
  - Haemorrhage [Unknown]
  - Disease recurrence [Unknown]
  - Product adhesion issue [Unknown]
  - Heat exhaustion [Unknown]
  - Hot flush [Unknown]
